FAERS Safety Report 17198414 (Version 1)
Quarter: 2019Q4

REPORT INFORMATION
  Report Type: Spontaneous
  Country: FR (occurrence: FR)
  Receive Date: 20191225
  Receipt Date: 20191225
  Transmission Date: 20200122
  Serious: Yes (Death, Other)
  Sender: FDA-Public Use
  Company Number: FR-ACCORD-166982

PATIENT
  Age: 85 Year
  Sex: Male
  Weight: 77 kg

DRUGS (18)
  1. FUROSEMIDE. [Suspect]
     Active Substance: FUROSEMIDE
     Indication: PRODUCT USED FOR UNKNOWN INDICATION
     Route: 048
  2. BISOCE [Concomitant]
     Active Substance: BISOPROLOL
     Dosage: STRENGTH 2.5 MG, SCORED FILM-COATED TABLET
  3. CORDARONE [Concomitant]
     Active Substance: AMIODARONE HYDROCHLORIDE
     Dosage: STRENGTH 200 MG, SCORED TABLET
  4. PREDNISONE. [Concomitant]
     Active Substance: PREDNISONE
  5. TARDYFERON [Concomitant]
     Active Substance: FERROUS SULFATE
  6. SPECIAFOLDINE [Concomitant]
     Active Substance: FOLIC ACID
  7. MOVICOL [Concomitant]
     Active Substance: POLYETHYLENE GLYCOL 3350\POTASSIUM CHLORIDE\SODIUM BICARBONATE\SODIUM CHLORIDE
  8. ATORVASTATIN/ATORVASTATIN CALCIUM [Suspect]
     Active Substance: ATORVASTATIN CALCIUM
     Indication: PROPHYLAXIS
     Route: 048
  9. GEMCITABINE/GEMCITABINE HYDROCHLORIDE [Suspect]
     Active Substance: GEMCITABINE\GEMCITABINE HYDROCHLORIDE
     Indication: URINARY TRACT INFECTION
     Route: 030
     Dates: start: 20190510, end: 20190519
  10. NORSET [Concomitant]
     Active Substance: MIRTAZAPINE
  11. ASPIRIN PROTECT [Concomitant]
     Active Substance: ASPIRIN
  12. LANSOYL [Concomitant]
     Active Substance: MINERAL OIL
  13. IKOREL [Concomitant]
     Active Substance: NICORANDIL
     Dosage: STRENGTH 20 MG
  14. DOLIPRANE [Concomitant]
     Active Substance: ACETAMINOPHEN
  15. ZYMAD [Concomitant]
     Active Substance: CHOLECALCIFEROL
  16. ESOMEPRAZOLE/ESOMEPRAZOLE MAGNESIUM/ESOMEPRAZOLE SODIUM [Concomitant]
     Active Substance: ESOMEPRAZOLE
  17. ALLOPURINOL. [Concomitant]
     Active Substance: ALLOPURINOL
  18. COLCHIMAX (COLCHICINE\PAPAVER SOMNIFERUM POWDER\TIEMONIUM METHYLSULPHATE) [Suspect]
     Active Substance: COLCHICINE\OPIUM\TIEMONIUM METHYLSULFATE
     Indication: ARTHRALGIA
     Route: 048
     Dates: start: 20190510, end: 20190525

REACTIONS (4)
  - Acute kidney injury [Fatal]
  - Accidental overdose [Fatal]
  - Metabolic acidosis [Not Recovered/Not Resolved]
  - Pancytopenia [Not Recovered/Not Resolved]

NARRATIVE: CASE EVENT DATE: 20190525
